FAERS Safety Report 15573512 (Version 2)
Quarter: 2018Q4

REPORT INFORMATION
  Report Type: Report from Study
  Country: None (occurrence: US)
  Receive Date: 20181101
  Receipt Date: 20181225
  Transmission Date: 20190205
  Serious: Yes (Hospitalization, Other)
  Sender: FDA-Public Use
  Company Number: US-ABBVIE-18K-163-2537564-00

PATIENT
  Age: 39 Year
  Sex: Male

DRUGS (1)
  1. HUMIRA [Suspect]
     Active Substance: ADALIMUMAB
     Indication: PSORIATIC ARTHROPATHY
     Route: 058
     Dates: start: 201809, end: 20181026

REACTIONS (5)
  - Loss of consciousness [Unknown]
  - Head injury [Unknown]
  - Blood pressure increased [Recovered/Resolved]
  - Seizure [Unknown]
  - Demyelination [Unknown]

NARRATIVE: CASE EVENT DATE: 2018
